FAERS Safety Report 7148252-1 (Version None)
Quarter: 2010Q4

REPORT INFORMATION
  Report Type: 
  Country: None (occurrence: None)
  Receive Date: 20101209
  Receipt Date: 20101203
  Transmission Date: 20110411
  Serious: Yes (Other)
  Sender: FDA-Public Use
  Company Number: PHHY2010US82908

PATIENT
  Sex: Male

DRUGS (4)
  1. LAMISIL [Suspect]
     Dosage: UNK
     Route: 048
     Dates: start: 19950101
  2. TERBINAFINE HCL [Suspect]
     Dosage: TWO TABLETS
     Route: 048
  3. LISINOPRIL [Concomitant]
     Dosage: UNK
  4. ATENOLOL [Concomitant]
     Dosage: UNK

REACTIONS (3)
  - DYSGEUSIA [None]
  - LIP DISORDER [None]
  - TOOTH EXTRACTION [None]
